FAERS Safety Report 8831051 (Version 1)
Quarter: 2012Q4

REPORT INFORMATION
  Report Type: Report from Study
  Country: DE (occurrence: DE)
  Receive Date: 20121009
  Receipt Date: 20121009
  Transmission Date: 20130627
  Serious: Yes (Other)
  Sender: FDA-Public Use
  Company Number: PHHO2012DE014197

PATIENT
  Sex: Female
  Weight: 50 kg

DRUGS (2)
  1. CGP 57148B [Suspect]
     Indication: CHRONIC MYELOID LEUKAEMIA
     Dosage: 400 mg, QD
     Route: 048
     Dates: start: 20031115, end: 20100909
  2. ASS [Concomitant]
     Indication: AMAUROSIS FUGAX
     Dosage: 100 mg, QD
     Dates: start: 20061124

REACTIONS (2)
  - Transient ischaemic attack [Not Recovered/Not Resolved]
  - Asthenia [Not Recovered/Not Resolved]
